FAERS Safety Report 5604347-2 (Version None)
Quarter: 2008Q1

REPORT INFORMATION
  Report Type: 
  Country: None (occurrence: None)
  Receive Date: 20080128
  Receipt Date: 20080118
  Transmission Date: 20080703
  Serious: Yes (Other)
  Sender: FDA-Public Use
  Company Number: JP-AVENTIS-200713479JP

PATIENT
  Age: 68 Year
  Sex: Male

DRUGS (2)
  1. TAXOTERE [Suspect]
     Indication: GASTRIC CANCER
     Route: 041
  2. TS-1 [Concomitant]
     Indication: GASTRIC CANCER

REACTIONS (1)
  - BLINDNESS UNILATERAL [None]
